FAERS Safety Report 8217664-7 (Version None)
Quarter: 2012Q1

REPORT INFORMATION
  Report Type: 
  Country: None (occurrence: None)
  Receive Date: 20120315
  Receipt Date: 20120228
  Transmission Date: 20120608
  Serious: Yes (Other)
  Sender: FDA-Public Use
  Company Number: B0786067A

PATIENT
  Sex: Female

DRUGS (5)
  1. AMOXICILLIN/CLAVULANATE POTASSIUM [Suspect]
     Dosage: TRANSPLACENTARY
     Route: 064
  2. ACETAMINOPHEN [Suspect]
     Dosage: TRANSPLACENTARY
     Route: 064
  3. RANITIDINE HYDROCHLORIDE [Suspect]
     Dosage: TRANSPLACENTARY
     Route: 064
  4. METRONIDAZOLE [Suspect]
     Dosage: TRANSPLACENTARY
     Route: 064
  5. DICLOFENAC TABLET (GENERIC) (DICLOFENAC) [Suspect]
     Dosage: 50 MG / TWICE PER DAY / TRANSPLACEN
     Route: 064

REACTIONS (3)
  - MATERNAL DRUGS AFFECTING FOETUS [None]
  - RENAL FAILURE NEONATAL [None]
  - PLACENTAL INSUFFICIENCY [None]
